FAERS Safety Report 18399007 (Version 1)
Quarter: 2020Q4

REPORT INFORMATION
  Report Type: Spontaneous
  Country: JP (occurrence: JP)
  Receive Date: 20201019
  Receipt Date: 20201019
  Transmission Date: 20210114
  Serious: Yes (Hospitalization)
  Sender: FDA-Public Use
  Company Number: JP-JUBILANT CADISTA PHARMACEUTICALS-2020JUB00311

PATIENT
  Age: 85 Year
  Sex: Female

DRUGS (3)
  1. LEVETIRACETAM. [Suspect]
     Active Substance: LEVETIRACETAM
     Indication: SEIZURE PROPHYLAXIS
     Route: 065
  2. DEXAMETHASONE. [Concomitant]
     Active Substance: DEXAMETHASONE
     Indication: BRAIN NEOPLASM
     Dosage: 6.6 MG, 1X/DAY
     Route: 065
  3. GLYCEROL [Concomitant]
     Active Substance: GLYCERIN
     Indication: BRAIN NEOPLASM
     Dosage: 600 MG, 1X/DAY
     Route: 065

REACTIONS (3)
  - Respiratory failure [Recovering/Resolving]
  - Pneumonia [Recovering/Resolving]
  - Interstitial lung disease [Recovering/Resolving]
